FAERS Safety Report 16993058 (Version 5)
Quarter: 2020Q1

REPORT INFORMATION
  Report Type: Spontaneous
  Country: US (occurrence: US)
  Receive Date: 20191105
  Receipt Date: 20200310
  Transmission Date: 20200409
  Serious: Yes (Hospitalization, Other)
  Sender: FDA-Public Use
  Company Number: US-AMNEAL PHARMACEUTICALS-2019-IPXL-01026

PATIENT
  Sex: Female
  Weight: 49.44 kg

DRUGS (2)
  1. RYTARY [Suspect]
     Active Substance: CARBIDOPA\LEVODOPA
     Dosage: 48.75-195 MG, 1 CAPSULES, 4X/DAY (AT 6AM, 6PM, BETWEEN MIDNIGHT AND 3AM)
     Route: 048
  2. RYTARY [Suspect]
     Active Substance: CARBIDOPA\LEVODOPA
     Indication: PRODUCT USED FOR UNKNOWN INDICATION
     Dosage: 36.25-145 MG, 2 CAPSULES, 4X/DAY
     Route: 048
     Dates: end: 20200127

REACTIONS (4)
  - Weight decreased [Not Recovered/Not Resolved]
  - Product dose omission [Unknown]
  - Hypotension [Unknown]
  - Therapy cessation [Unknown]
